FAERS Safety Report 4514969-8 (Version None)
Quarter: 2004Q4

REPORT INFORMATION
  Report Type: 
  Country: None (occurrence: None)
  Receive Date: 20041201
  Receipt Date: 20041118
  Transmission Date: 20050328
  Serious: Yes (Other)
  Sender: FDA-Public Use
  Company Number: AU-NOVOPROD-240591

PATIENT
  Age: 71 Year
  Sex: Male

DRUGS (1)
  1. MIXTARD HUMAN 70/30 [Suspect]
     Indication: DIABETES MELLITUS
     Dosage: 12 U, UNK

REACTIONS (2)
  - INTESTINAL PERFORATION [None]
  - TRIPLE VESSEL BYPASS GRAFT [None]
